FAERS Safety Report 15338897 (Version 2)
Quarter: 2019Q1

REPORT INFORMATION
  Report Type: Spontaneous
  Country: FR (occurrence: FR)
  Receive Date: 20180831
  Receipt Date: 20190125
  Transmission Date: 20190417
  Serious: Yes (Hospitalization, Other)
  Sender: FDA-Public Use
  Company Number: FR-PFIZER INC-2018350175

PATIENT
  Age: 78 Year
  Sex: Male
  Weight: 76 kg

DRUGS (13)
  1. NOVOMIX [Concomitant]
     Active Substance: INSULIN ASPART
     Dosage: UNK
  2. ATORVASTATINE [ATORVASTATIN] [Concomitant]
     Active Substance: ATORVASTATIN
     Dosage: UNK
  3. GRANUDOXY [DOXYCYCLINE] [Suspect]
     Active Substance: DOXYCYCLINE
     Indication: OSTEITIS
     Dosage: 200 MG, DAILY (QD)
     Route: 048
     Dates: start: 20160808, end: 20160825
  4. BISOPROLOL FUMARATE. [Concomitant]
     Active Substance: BISOPROLOL FUMARATE
     Dosage: UNK
  5. KARDEGIC [Concomitant]
     Active Substance: ASPIRIN DL-LYSINE
     Dosage: UNK
  6. BACTRIM [Suspect]
     Active Substance: SULFAMETHOXAZOLE\TRIMETHOPRIM
     Indication: OSTEITIS
     Dosage: 3 DF, DAILY (QD)
     Route: 048
     Dates: start: 20160802, end: 20160825
  7. EXELON [RIVASTIGMINE HYDROGEN TARTRATE] [Concomitant]
     Dosage: UNK
  8. RAMIPRIL. [Suspect]
     Active Substance: RAMIPRIL
     Indication: HYPERTENSION
     Dosage: 10 MG, DAILY (QD)
     Route: 048
     Dates: end: 20160825
  9. LASILIX FAIBLE [Suspect]
     Active Substance: FUROSEMIDE
     Indication: HYPERTENSION
     Dosage: 1 DF, DAILY (QD)
     Route: 048
     Dates: end: 20160825
  10. FRAGMINE [Suspect]
     Active Substance: DALTEPARIN SODIUM
     Indication: THROMBOSIS PROPHYLAXIS
     Dosage: 1 DF, DAILY (QD)
     Route: 058
     Dates: start: 20160815, end: 20160825
  11. METFORMIN HCL [Suspect]
     Active Substance: METFORMIN HYDROCHLORIDE
     Indication: INSULIN-REQUIRING TYPE 2 DIABETES MELLITUS
     Dosage: 2000 MG, DAILY (QD)
     Route: 048
     Dates: end: 20160825
  12. ZAMUDOL [Suspect]
     Active Substance: TRAMADOL HYDROCHLORIDE
     Indication: PAIN
     Dosage: 2 DF, DAILY (QD)
     Route: 048
     Dates: start: 20160730, end: 20160825
  13. CLAMOXYL [AMOXICILLIN TRIHYDRATE] [Suspect]
     Active Substance: AMOXICILLIN
     Indication: OSTEITIS
     Dosage: 6 DF, DAILY (QD)
     Route: 048
     Dates: start: 20160803, end: 20160825

REACTIONS (2)
  - Acute kidney injury [Recovered/Resolved]
  - Hyperkalaemia [Recovered/Resolved]

NARRATIVE: CASE EVENT DATE: 20160824
